FAERS Safety Report 18214106 (Version 1)
Quarter: 2020Q3

REPORT INFORMATION
  Report Type: Spontaneous
  Country: US (occurrence: US)
  Receive Date: 20200831
  Receipt Date: 20200831
  Transmission Date: 20201103
  Serious: Yes (Death)
  Sender: FDA-Public Use
  Company Number: US-PFIZER INC-2020335307

PATIENT
  Age: 70 Year
  Sex: Male
  Weight: 63.5 kg

DRUGS (1)
  1. REVATIO [Suspect]
     Active Substance: SILDENAFIL CITRATE
     Indication: CARDIAC FAILURE CONGESTIVE
     Dosage: 20 MG, 3X/DAY
     Route: 048

REACTIONS (1)
  - Cardiac disorder [Fatal]
